FAERS Safety Report 19649446 (Version 4)
Quarter: 2022Q1

REPORT INFORMATION
  Report Type: Report from Study
  Country: US (occurrence: US)
  Receive Date: 20210802
  Receipt Date: 20220324
  Transmission Date: 20220423
  Serious: Yes (Hospitalization)
  Sender: FDA-Public Use
  Company Number: NVSC2021US173965

PATIENT
  Age: 66 Year
  Sex: Male

DRUGS (1)
  1. ENTRESTO [Suspect]
     Active Substance: SACUBITRIL\VALSARTAN
     Indication: Cardiac failure
     Dosage: 100 MG, BID
     Route: 048
     Dates: start: 202106

REACTIONS (10)
  - Back injury [Recovering/Resolving]
  - Spinal fracture [Recovering/Resolving]
  - Fall [Recovering/Resolving]
  - Balance disorder [Recovered/Resolved]
  - Hypertension [Recovered/Resolved]
  - Weight decreased [Unknown]
  - Paronychia [Recovered/Resolved]
  - Dysstasia [Unknown]
  - Back pain [Unknown]
  - Dizziness [Unknown]

NARRATIVE: CASE EVENT DATE: 20210728
